FAERS Safety Report 25893196 (Version 2)
Quarter: 2025Q4

REPORT INFORMATION
  Report Type: Spontaneous
  Country: US (occurrence: US)
  Receive Date: 20251008
  Receipt Date: 20251112
  Transmission Date: 20260117
  Serious: No
  Sender: SANDOZ
  Company Number: US-SANDOZ-SDZ2025US071718

PATIENT

DRUGS (1)
  1. ESTRADIOL [Suspect]
     Active Substance: ESTRADIOL
     Indication: Product used for unknown indication
     Dosage: 0.1MG/24H  8TTS V1 US
     Route: 062

REACTIONS (3)
  - Product use complaint [Unknown]
  - Circumstance or information capable of leading to medication error [Unknown]
  - Product adhesion issue [Unknown]
